FAERS Safety Report 9861129 (Version 2)
Quarter: 2014Q1

REPORT INFORMATION
  Report Type: Spontaneous
  Country: US (occurrence: US)
  Receive Date: 20140202
  Receipt Date: 20140202
  Transmission Date: 20141002
  Serious: No
  Sender: FDA-Public Use
  Company Number: US-ALLERGAN-1303717US

PATIENT
  Age: 24 Year
  Sex: Male

DRUGS (4)
  1. BOTOX [Suspect]
     Indication: MIGRAINE
     Dosage: 155 UNITS, SINGLE
     Route: 030
     Dates: start: 20120105, end: 20120105
  2. ANAPROX [Concomitant]
     Indication: MIGRAINE
     Dosage: UNK UNK, PRN
  3. COMPAZINE                          /00013302/ [Concomitant]
     Indication: MIGRAINE
     Dosage: UNK UNK, PRN
  4. DHE                                /00017802/ [Concomitant]
     Indication: MIGRAINE
     Dosage: UNK UNK, PRN

REACTIONS (4)
  - Eyelid oedema [Recovered/Resolved]
  - Eye discharge [Recovered/Resolved]
  - Eye infection [Recovered/Resolved]
  - Eyelid ptosis [Recovered/Resolved]
